FAERS Safety Report 8262904-1 (Version None)
Quarter: 2012Q2

REPORT INFORMATION
  Report Type: 
  Country: None (occurrence: None)
  Receive Date: 20120405
  Receipt Date: 20120106
  Transmission Date: 20120825
  Serious: Yes (Life-Threatening, Hospitalization)
  Sender: FDA-Public Use
  Company Number: BE-GLAXOSMITHKLINE-B0774478A

PATIENT
  Sex: Male

DRUGS (3)
  1. DEPAKINE CHRONO (VALPROIC ACID) [Concomitant]
     Indication: EPILEPSY
     Dosage: 500MG FOUR TIMES PER DAY
     Route: 048
     Dates: start: 20070101
  2. PENICILLINS [Concomitant]
  3. LAMICTAL [Suspect]
     Indication: EPILEPSY
     Dosage: 50MG PER DAY
     Route: 065
     Dates: start: 20111209, end: 20111224

REACTIONS (9)
  - HYPERSENSITIVITY [None]
  - SKIN EXFOLIATION [None]
  - RASH [None]
  - TOXIC EPIDERMAL NECROLYSIS [None]
  - INFLAMMATION [None]
  - HEPATIC ENZYME INCREASED [None]
  - PYREXIA [None]
  - SKIN DISORDER [None]
  - SYNOVIAL CYST [None]
